FAERS Safety Report 12803906 (Version 2)
Quarter: 2016Q4

REPORT INFORMATION
  Report Type: Report from Study
  Country: US (occurrence: US)
  Receive Date: 20161003
  Receipt Date: 20161108
  Transmission Date: 20170207
  Serious: Yes (Hospitalization)
  Sender: FDA-Public Use
  Company Number: US-JNJFOC-20160924725

PATIENT
  Sex: Male
  Weight: 95.26 kg

DRUGS (3)
  1. VYTORIN [Concomitant]
     Active Substance: EZETIMIBE\SIMVASTATIN
     Indication: BLOOD CHOLESTEROL
     Dosage: 10 OR 40 MG
     Route: 048
     Dates: start: 2006
  2. STELARA [Suspect]
     Active Substance: USTEKINUMAB
     Indication: PSORIASIS
     Route: 058
     Dates: start: 2013
  3. METOPROLOL. [Concomitant]
     Active Substance: METOPROLOL
     Indication: HYPERTENSION
     Route: 048
     Dates: start: 2006

REACTIONS (4)
  - Drug ineffective [Unknown]
  - Rash erythematous [Not Recovered/Not Resolved]
  - Knee arthroplasty [Unknown]
  - Prostate cancer [Unknown]

NARRATIVE: CASE EVENT DATE: 2013
